FAERS Safety Report 14109627 (Version 1)
Quarter: 2017Q4

REPORT INFORMATION
  Report Type: Report from Study
  Country: US (occurrence: US)
  Receive Date: 20171020
  Receipt Date: 20171020
  Transmission Date: 20180321
  Serious: Yes (Hospitalization, Other)
  Sender: FDA-Public Use
  Company Number: US-AMGEN-USASL2017112696

PATIENT
  Age: 56 Year
  Sex: Male
  Weight: 82.86 kg

DRUGS (22)
  1. ZOFRAN [Concomitant]
     Active Substance: ONDANSETRON HYDROCHLORIDE
     Indication: NAUSEA
     Dosage: 4 MG, Q8H
     Route: 042
     Dates: start: 201706
  2. REPATHA [Suspect]
     Active Substance: EVOLOCUMAB
     Indication: DYSLIPIDAEMIA
     Dosage: 140 MG, Q2WK
     Route: 058
     Dates: start: 20170518, end: 20170716
  3. ASPIRIN. [Concomitant]
     Active Substance: ASPIRIN
     Dosage: 325 MG, QD
     Route: 048
     Dates: start: 201706
  4. DOBUTAMINE [Concomitant]
     Active Substance: DOBUTAMINE\DOBUTAMINE HYDROCHLORIDE
     Dosage: 250 MG, UNK
     Dates: start: 201706, end: 20170618
  5. ASPIRIN. [Concomitant]
     Active Substance: ASPIRIN
     Indication: CORONARY ARTERY DISEASE
     Dosage: 81 MG, QD
     Route: 048
  6. ATROPINE. [Concomitant]
     Active Substance: ATROPINE
     Dosage: 0.5 MG, AS NECESSARY
     Route: 042
     Dates: start: 201706
  7. PERSANTINE [Concomitant]
     Active Substance: DIPYRIDAMOLE
     Dosage: 46.398 MG, UNK
     Route: 042
     Dates: start: 201706
  8. MOTRIN [Concomitant]
     Active Substance: IBUPROFEN
     Indication: DISCOMFORT
  9. TYLENOL [Concomitant]
     Active Substance: ACETAMINOPHEN
     Indication: PAIN
     Dosage: 650 MG, Q4H
     Route: 048
     Dates: start: 201706
  10. NICODERM CQ [Concomitant]
     Active Substance: NICOTINE
     Dosage: 14 G, QD
     Route: 062
     Dates: start: 201706
  11. AMPHOJEL [Concomitant]
     Active Substance: ALUMINUM HYDROXIDE
     Indication: DYSPEPSIA
     Dosage: 1920 MG, Q4H
     Dates: start: 201706
  12. TYLENOL [Concomitant]
     Active Substance: ACETAMINOPHEN
     Indication: DISCOMFORT
  13. AMBIEN [Concomitant]
     Active Substance: ZOLPIDEM TARTRATE
     Indication: INSOMNIA
     Dosage: 5 MG, QHS
     Route: 048
     Dates: start: 201706
  14. AMPHOJEL [Concomitant]
     Active Substance: ALUMINUM HYDROXIDE
     Indication: DYSPEPSIA
  15. MORPHINE [Concomitant]
     Active Substance: MORPHINE
     Indication: PAIN
     Dosage: 2 MG, Q3H
     Route: 042
     Dates: start: 201706
  16. TUMS [Concomitant]
     Active Substance: CALCIUM CARBONATE
     Indication: DYSPEPSIA
  17. AMINOPHYLLINE. [Concomitant]
     Active Substance: AMINOPHYLLINE
     Dosage: 75 MG, AS NECESSARY
     Route: 042
     Dates: start: 201706
  18. ZOFRAN [Concomitant]
     Active Substance: ONDANSETRON HYDROCHLORIDE
     Indication: VOMITING
  19. REPATHA [Suspect]
     Active Substance: EVOLOCUMAB
     Indication: CORONARY ARTERY DISEASE
  20. DEXTROSE. [Concomitant]
     Active Substance: DEXTROSE
     Dosage: 250 ML, UNK
     Dates: start: 201706, end: 20170618
  21. MOTRIN [Concomitant]
     Active Substance: IBUPROFEN
     Indication: PAIN
     Dosage: 600 MG, Q6H
     Route: 048
     Dates: start: 201706
  22. TUMS [Concomitant]
     Active Substance: CALCIUM CARBONATE
     Indication: DYSPEPSIA
     Dosage: 1000 MG, Q4H
     Route: 048
     Dates: start: 201706

REACTIONS (5)
  - Hypersensitivity [Unknown]
  - Chest pain [Unknown]
  - Malaise [Unknown]
  - Dyspnoea exertional [Recovered/Resolved]
  - Sinus bradycardia [Unknown]

NARRATIVE: CASE EVENT DATE: 201705
